FAERS Safety Report 9191211 (Version 2)
Quarter: 2013Q3

REPORT INFORMATION
  Report Type: Spontaneous
  Country: PL (occurrence: PL)
  Receive Date: 20130326
  Receipt Date: 20130924
  Transmission Date: 20140515
  Serious: Yes (Death, Other)
  Sender: FDA-Public Use
  Company Number: PHHY2013PL028100

PATIENT
  Age: 33 Year
  Sex: Female

DRUGS (9)
  1. METOCLOPRAMIDE [Suspect]
     Indication: NAUSEA
  2. METOCLOPRAMIDE [Suspect]
     Indication: VOMITING
  3. DEXAMETHASONE [Suspect]
     Indication: SWELLING
  4. CISPLATIN [Suspect]
     Indication: PRIMARY MEDIASTINAL LARGE B-CELL LYMPHOMA
     Dosage: 100 MG/M2, UNK
     Route: 042
  5. CISPLATIN [Suspect]
     Dosage: 100 MG/M2, FOUR TIMES (22 HR I.V INFUSION)
     Route: 042
  6. ONDANSETRON [Suspect]
     Indication: NAUSEA
  7. ETOPOSIDE [Concomitant]
     Indication: PRIMARY MEDIASTINAL LARGE B-CELL LYMPHOMA
     Dosage: 40 MG/M2, UNK
     Route: 042
  8. METHYLPREDNISOLONE [Concomitant]
     Indication: PRIMARY MEDIASTINAL LARGE B-CELL LYMPHOMA
     Dosage: 500 MG/M2, UNK
     Route: 042
  9. CYTARABINE [Concomitant]
     Indication: PRIMARY MEDIASTINAL LARGE B-CELL LYMPHOMA
     Dosage: 2 G/M2

REACTIONS (35)
  - Cardiac arrest [Fatal]
  - Sepsis [Fatal]
  - Multi-organ failure [Fatal]
  - Overdose [Fatal]
  - Hearing impaired [Unknown]
  - Deafness [Unknown]
  - Renal failure [Unknown]
  - Anuria [Unknown]
  - Hepatic failure [Unknown]
  - Electrolyte imbalance [Unknown]
  - Bone marrow failure [Unknown]
  - Anaemia [Unknown]
  - Agranulocytosis [Unknown]
  - Thrombocytopenia [Unknown]
  - Enterococcus test positive [Unknown]
  - Stenotrophomonas test positive [Unknown]
  - Klebsiella test positive [Unknown]
  - Respiratory failure [Unknown]
  - Dyspnoea [Unknown]
  - Blood pressure decreased [Unknown]
  - Circulatory collapse [Unknown]
  - Chest pain [Unknown]
  - Cardiomyopathy [Unknown]
  - Loss of consciousness [Unknown]
  - Arrhythmia [Unknown]
  - Supraventricular tachycardia [Unknown]
  - Atrial fibrillation [Unknown]
  - Haemorrhagic diathesis [Unknown]
  - Prothrombin time prolonged [Unknown]
  - Back pain [Unknown]
  - Vomiting [Unknown]
  - Nausea [Unknown]
  - Swelling face [Unknown]
  - Asthenia [Unknown]
  - Drug ineffective [Unknown]
